FAERS Safety Report 22276706 (Version 1)
Quarter: 2023Q2

REPORT INFORMATION
  Report Type: Report from Study
  Country: US (occurrence: US)
  Receive Date: 20230503
  Receipt Date: 20230503
  Transmission Date: 20230721
  Serious: Yes (Other)
  Sender: FDA-Public Use
  Company Number: US-ABBVIE-4748358

PATIENT
  Age: 50 Year
  Sex: Female

DRUGS (1)
  1. RINVOQ [Suspect]
     Active Substance: UPADACITINIB
     Indication: Colitis ulcerative
     Route: 048
     Dates: start: 20230226

REACTIONS (7)
  - Diarrhoea haemorrhagic [Unknown]
  - Large intestine infection [Recovering/Resolving]
  - Blood pressure decreased [Unknown]
  - Influenza like illness [Unknown]
  - Cold sweat [Unknown]
  - White blood cell count increased [Unknown]
  - Gastrointestinal infection [Unknown]

NARRATIVE: CASE EVENT DATE: 20230424
